FAERS Safety Report 15347095 (Version 1)
Quarter: 2018Q3

REPORT INFORMATION
  Report Type: Spontaneous
  Country: US (occurrence: US)
  Receive Date: 20180904
  Receipt Date: 20180904
  Transmission Date: 20181010
  Serious: No
  Sender: FDA-Public Use
  Company Number: US-VERTEX PHARMACEUTICALS-2018-006307

PATIENT
  Age: 30 Year
  Sex: Female

DRUGS (2)
  1. ORKAMBI [Suspect]
     Active Substance: IVACAFTOR\LUMACAFTOR
     Indication: CYSTIC FIBROSIS
     Route: 048
  2. AZTREONAM LYSINE [Suspect]
     Active Substance: AZTREONAM LYSINE
     Indication: CYSTIC FIBROSIS
     Dosage: 75 MG
     Route: 055

REACTIONS (5)
  - Upper-airway cough syndrome [Recovered/Resolved]
  - Sinus disorder [Recovered/Resolved]
  - Aphonia [Recovered/Resolved]
  - Oropharyngeal pain [Recovered/Resolved]
  - Chest discomfort [Recovered/Resolved]
